FAERS Safety Report 7931428-0 (Version None)
Quarter: 2011Q4

REPORT INFORMATION
  Report Type: 
  Country: None (occurrence: None)
  Receive Date: 20111121
  Receipt Date: 20111110
  Transmission Date: 20120403
  Serious: Yes (Hospitalization)
  Sender: FDA-Public Use
  Company Number: JP-SANOFI-AVENTIS-2011SA074346

PATIENT
  Age: 60 Year
  Sex: Female
  Weight: 70.1 kg

DRUGS (22)
  1. ASPIRIN [Concomitant]
     Route: 048
     Dates: start: 20090731
  2. HEPARIN [Concomitant]
     Dosage: DOSE- 1000 UNITS DOSE:10000 UNIT(S)
     Route: 041
     Dates: start: 20090805, end: 20090805
  3. FLUTICASONE PROPIONATE [Concomitant]
     Dosage: INHALER
     Route: 055
     Dates: start: 20090729
  4. EPADEL [Concomitant]
     Route: 048
     Dates: start: 20090731
  5. ROCEPHIN [Concomitant]
     Route: 041
     Dates: start: 20090722, end: 20090803
  6. LOSARTAN POTASSIUM [Concomitant]
     Route: 048
  7. SELBEX [Concomitant]
     Route: 048
  8. HUMALOG [Concomitant]
     Dosage: DOSE- 8 UNITS UNKNOWN DOSE:8 UNIT(S)
     Route: 041
     Dates: start: 20090727
  9. SIMVASTATIN [Concomitant]
     Route: 048
     Dates: end: 20090730
  10. AMLODIPINE BESYLATE [Concomitant]
     Route: 048
  11. LANTUS [Concomitant]
     Dosage: DOSE-20 UNITS- UNKNOWN DOSE:20 UNIT(S)
     Route: 041
     Dates: start: 20090723
  12. PLAVIX [Suspect]
     Dosage: MAINTENANCE TREATMENT
     Route: 065
     Dates: start: 20090801
  13. PLAVIX [Suspect]
     Dosage: LOADING TREATMENT
     Route: 065
     Dates: start: 20090731, end: 20090731
  14. ALLOPURINOL [Concomitant]
     Route: 048
  15. GLUCOBAY [Concomitant]
     Route: 048
  16. ZETIA [Concomitant]
     Route: 048
     Dates: end: 20091004
  17. ATORVASTATIN [Concomitant]
     Route: 048
     Dates: start: 20090807
  18. CEFAZOLIN [Concomitant]
     Route: 041
     Dates: start: 20090805, end: 20090809
  19. KINEDAK [Concomitant]
     Route: 048
  20. MONTELUKAST SODIUM [Concomitant]
     Route: 048
     Dates: start: 20090729
  21. TRICHLORMETHIAZIDE [Concomitant]
     Route: 048
  22. HERBAL PREPARATION [Concomitant]
     Route: 048
     Dates: start: 20090810

REACTIONS (2)
  - GLYCOSYLATED HAEMOGLOBIN INCREASED [None]
  - BLOOD GLUCOSE INCREASED [None]
